FAERS Safety Report 10051611 (Version 4)
Quarter: 2014Q4

REPORT INFORMATION
  Report Type: Spontaneous
  Country: US (occurrence: US)
  Receive Date: 20140401
  Receipt Date: 20141124
  Transmission Date: 20150528
  Serious: Yes (Hospitalization, Other)
  Sender: FDA-Public Use
  Company Number: US-US-EMD SERONO, INC.-7279193

PATIENT
  Age: 56 Year
  Sex: Female
  Weight: 79 kg

DRUGS (1)
  1. REBIF [Suspect]
     Active Substance: INTERFERON BETA-1A
     Indication: MULTIPLE SCLEROSIS
     Dates: start: 20060104

REACTIONS (4)
  - Angina pectoris [Recovering/Resolving]
  - Type 2 diabetes mellitus [Recovering/Resolving]
  - Coronary artery disease [Recovering/Resolving]
  - Venous occlusion [Unknown]

NARRATIVE: CASE EVENT DATE: 201303
